FAERS Safety Report 6802154-6 (Version None)
Quarter: 2010Q2

REPORT INFORMATION
  Report Type: 
  Country: None (occurrence: None)
  Receive Date: 20100629
  Receipt Date: 20071219
  Transmission Date: 20101027
  Serious: No
  Sender: FDA-Public Use
  Company Number: US-PFIZER INC-2006072950

PATIENT
  Sex: Male
  Weight: 86.2 kg

DRUGS (5)
  1. VIAGRA [Suspect]
     Indication: ERECTILE DYSFUNCTION
  2. ALLERGY MEDICATION [Interacting]
     Indication: HYPERSENSITIVITY
  3. METFORMIN HCL [Concomitant]
  4. ANTI-DIABETICS [Concomitant]
  5. AVANDIA [Concomitant]

REACTIONS (4)
  - DRUG EFFECT DECREASED [None]
  - DRUG INEFFECTIVE [None]
  - DRUG INTERACTION [None]
  - SEASONAL ALLERGY [None]
